FAERS Safety Report 23671554 (Version 1)
Quarter: 2024Q1

REPORT INFORMATION
  Report Type: Spontaneous
  Country: US (occurrence: US)
  Receive Date: 20240326
  Receipt Date: 20240326
  Transmission Date: 20240409
  Serious: No
  Sender: FDA-Public Use
  Company Number: US-ELI_LILLY_AND_COMPANY-US202403009156

PATIENT
  Age: 56 Year
  Sex: Female

DRUGS (2)
  1. HUMULIN 70/30 [Suspect]
     Active Substance: INSULIN HUMAN
     Indication: Product used for unknown indication
     Dosage: 56 U, BID
     Route: 065
  2. TRULICITY [Suspect]
     Active Substance: DULAGLUTIDE
     Indication: Diabetes mellitus
     Dosage: 4.5 MG, UNKNOWN
     Route: 065
     Dates: start: 2023

REACTIONS (9)
  - Urinary tract infection [Unknown]
  - Influenza like illness [Unknown]
  - Disturbance in attention [Unknown]
  - Accident at home [Unknown]
  - Kidney infection [Unknown]
  - Infection [Unknown]
  - Nausea [Recovering/Resolving]
  - Abdominal discomfort [Unknown]
  - Drug ineffective [Unknown]
